FAERS Safety Report 4874357-1 (Version None)
Quarter: 2006Q1

REPORT INFORMATION
  Report Type: 
  Country: None (occurrence: None)
  Receive Date: 20060104
  Receipt Date: 20051222
  Transmission Date: 20060701
  Serious: Yes (Other)
  Sender: FDA-Public Use
  Company Number: 2005172675

PATIENT
  Age: 65 Year
  Sex: Male
  Weight: 80.2867 kg

DRUGS (6)
  1. LIPITOR [Suspect]
     Indication: ANGINA PECTORIS
     Dosage: 10 MG (10 MG, 1 IN 1 D)
     Dates: start: 20040201, end: 20050201
  2. LIPITOR [Suspect]
     Indication: BLOOD CHOLESTEROL INCREASED
     Dosage: 10 MG (10 MG, 1 IN 1 D)
     Dates: start: 20040201, end: 20050201
  3. NORVASC [Suspect]
     Indication: ANGINA PECTORIS
     Dosage: 5 MG (5 MG, 1 IN 1 D)
     Dates: start: 20040201, end: 20050201
  4. CADUET [Suspect]
     Indication: ANGINA PECTORIS
     Dosage: 10/5 MG (1 IN 1 D)
     Dates: start: 20050201
  5. TOPROL-XL [Suspect]
     Indication: ANGINA PECTORIS
     Dosage: 25 MG (25 MG, 1 IN 1 D)
     Dates: start: 20040201
  6. NICOTINIC ACID [Suspect]
     Indication: ANGINA PECTORIS
     Dates: start: 20050101, end: 20051201

REACTIONS (2)
  - ABDOMINAL PAIN UPPER [None]
  - UNEVALUABLE EVENT [None]
